FAERS Safety Report 7872077-2 (Version None)
Quarter: 2011Q4

REPORT INFORMATION
  Report Type: 
  Country: None (occurrence: None)
  Receive Date: 20111014
  Receipt Date: 20101001
  Transmission Date: 20120403
  Serious: Yes (Other)
  Sender: FDA-Public Use
  Company Number: 1000016592

PATIENT
  Age: 17 Year
  Sex: Female

DRUGS (6)
  1. PROPRANOLOL [Concomitant]
  2. FOCALIN XR (DEXMETHYLPHENIDATE HYDROCHLORIDE) (DEXMETHYLPHENIDATE HYDR [Concomitant]
  3. GEODON (ZIPRASIDONE) (ZIPRASIDONE) [Concomitant]
  4. LEXAPRO [Suspect]
     Indication: DEPRESSION
     Dosage: 10 MG (10 MG, 1 IN 1 D), ORAL
     Route: 048
     Dates: start: 20100922, end: 20100928
  5. TRAZODONE (TRAZODONE) (TABLETS) (TRAZODONE) [Concomitant]
  6. TOPAMAX (TOPIRAMATE) (TOPIRAMATE) [Concomitant]

REACTIONS (1)
  - DYSTONIA [None]
